FAERS Safety Report 18539315 (Version 1)
Quarter: 2020Q4

REPORT INFORMATION
  Report Type: Spontaneous
  Country: US (occurrence: US)
  Receive Date: 20201124
  Receipt Date: 20201124
  Transmission Date: 20210114
  Serious: No
  Sender: FDA-Public Use
  Company Number: US-KERYX BIOPHARMACEUTICALS INC.-2020US006875

PATIENT
  Age: 70 Year
  Sex: Female
  Weight: 146 kg

DRUGS (1)
  1. AURYXIA [Suspect]
     Active Substance: TETRAFERRIC TRICITRATE DECAHYDRATE
     Indication: HYPERPHOSPHATAEMIA
     Dosage: 1 GRAM (TABLET), QD
     Route: 048
     Dates: start: 20200625, end: 20200627

REACTIONS (1)
  - Nausea [Recovered/Resolved]

NARRATIVE: CASE EVENT DATE: 20200625
